FAERS Safety Report 6595655-X (Version None)
Quarter: 2010Q1

REPORT INFORMATION
  Report Type: 
  Country: None (occurrence: None)
  Receive Date: 20100222
  Receipt Date: 20100222
  Transmission Date: 20100710
  Serious: Yes (Life-Threatening, Hospitalization)
  Sender: FDA-Public Use
  Company Number: None

PATIENT
  Sex: Male
  Weight: 90.7194 kg

DRUGS (1)
  1. REMICADE [Suspect]
     Indication: RHEUMATOID ARTHRITIS
     Dosage: 600MG EVERY 6 WKS IV LAST INFUSION 10/13/2009
     Route: 042
     Dates: start: 20091013

REACTIONS (1)
  - HISTOPLASMOSIS DISSEMINATED [None]
